FAERS Safety Report 18220458 (Version 2)
Quarter: 2020Q3

REPORT INFORMATION
  Report Type: Report from Study
  Country: None (occurrence: US)
  Receive Date: 20200902
  Receipt Date: 20200921
  Transmission Date: 20201103
  Serious: Yes (Hospitalization)
  Sender: FDA-Public Use
  Company Number: US-ABBVIE-20K-163-3536861-00

PATIENT
  Age: 58 Year
  Sex: Male

DRUGS (2)
  1. HUMIRA [Suspect]
     Active Substance: ADALIMUMAB
     Route: 058
     Dates: start: 20200824
  2. HUMIRA [Suspect]
     Active Substance: ADALIMUMAB
     Indication: COLITIS ULCERATIVE
     Route: 058
     Dates: start: 20181105, end: 20200713

REACTIONS (15)
  - Hypersensitivity [Recovered/Resolved]
  - Flatulence [Unknown]
  - Erythema [Recovered/Resolved]
  - Anaemia [Recovered/Resolved]
  - Diarrhoea [Unknown]
  - Eating disorder [Unknown]
  - Abdominal pain upper [Unknown]
  - Post-traumatic stress disorder [Unknown]
  - Diarrhoea [Unknown]
  - Pruritus allergic [Recovered/Resolved]
  - Ocular hyperaemia [Recovered/Resolved]
  - Allergic oedema [Unknown]
  - Decreased appetite [Unknown]
  - Genital erythema [Recovered/Resolved]
  - Decreased appetite [Unknown]

NARRATIVE: CASE EVENT DATE: 2018
